FAERS Safety Report 5843095-0 (Version None)
Quarter: 2008Q3

REPORT INFORMATION
  Report Type: 
  Country: None (occurrence: None)
  Receive Date: 20080811
  Receipt Date: 20080724
  Transmission Date: 20090109
  Serious: Yes (Hospitalization)
  Sender: FDA-Public Use
  Company Number: DSA_32198_2008

PATIENT
  Age: 77 Year
  Sex: Female

DRUGS (6)
  1. ENALAPRIL MALEATE W/HYDROCHLOROTIAZIDE (ENALAPRIL MALEATE HCTZ) (BIOVA [Suspect]
     Indication: HYPERTENSION
     Dosage: DF, ORAL
     Route: 048
     Dates: start: 20071214, end: 20080615
  2. GLICLAZIDE [Concomitant]
  3. LERCANIDIPINE HYDROCHLORIDE [Concomitant]
  4. METFORMIN [Concomitant]
  5. MOXONIDINE [Concomitant]
  6. PIOGLITAZONE HCL [Concomitant]

REACTIONS (2)
  - DRUG INEFFECTIVE [None]
  - ECZEMA [None]
